FAERS Safety Report 4544716-5 (Version None)
Quarter: 2004Q4

REPORT INFORMATION
  Report Type: 
  Country: None (occurrence: None)
  Receive Date: 20041230
  Receipt Date: 20041221
  Transmission Date: 20050328
  Serious: Yes (Life-Threatening)
  Sender: FDA-Public Use
  Company Number: 2004-0007676

PATIENT
  Age: 22 Year
  Sex: Male

DRUGS (5)
  1. VIREAD [Suspect]
     Indication: HIV INFECTION
     Dosage: 300 MG, 1 IN 1 D; ORAL
     Route: 048
     Dates: start: 20040213, end: 20040302
  2. KALETRA [Suspect]
     Indication: HIV INFECTION
     Dosage: 6 DOSAGE FORMS, 1 IN 1 D; ORAL
     Route: 048
     Dates: start: 20040222, end: 20040302
  3. REYATAZ [Suspect]
     Indication: HIV INFECTION
     Dosage: 2 DOSAGE FORMS, 1 IN 1 D
     Dates: start: 20040219, end: 20040221
  4. EPIVIR [Concomitant]
  5. STOCRIN (EFAVIRENZ) [Concomitant]

REACTIONS (3)
  - BRADYCARDIA [None]
  - PYREXIA [None]
  - RASH [None]
